FAERS Safety Report 9914678 (Version 3)
Quarter: 2014Q2

REPORT INFORMATION
  Report Type: Spontaneous
  Country: IT (occurrence: IT)
  Receive Date: 20140220
  Receipt Date: 20140422
  Transmission Date: 20141212
  Serious: Yes (Other)
  Sender: FDA-Public Use
  Company Number: IT-PFIZER INC-2014046216

PATIENT
  Age: 39 Year
  Sex: Female

DRUGS (15)
  1. NELFINAVIR MESILATE [Suspect]
     Indication: HIV INFECTION
     Dosage: UNK
     Route: 048
     Dates: start: 199803
  2. NELFINAVIR MESILATE [Suspect]
     Indication: HIV TEST POSITIVE
  3. ZIDOVUDINE [Suspect]
     Indication: HIV INFECTION
     Dosage: UNK
     Dates: start: 199803
  4. SAQUINAVIR [Suspect]
     Indication: HIV INFECTION
     Dosage: UNK
  5. STAVUDINE [Suspect]
     Indication: HIV INFECTION
     Dosage: UNK
     Route: 048
     Dates: start: 199803
  6. STAVUDINE [Suspect]
     Indication: HIV TEST POSITIVE
  7. EFAVIRENZ [Suspect]
     Indication: HIV INFECTION
     Dosage: UNK
     Route: 048
     Dates: start: 199803
  8. EFAVIRENZ [Suspect]
     Indication: HIV TEST POSITIVE
  9. DIDANOSINE [Suspect]
     Indication: HIV INFECTION
     Dosage: UNK
  10. PYRIMETHAMINE [Concomitant]
     Dosage: UNK
  11. FUROSEMIDE [Concomitant]
     Dosage: UNK
  12. GANCICLOVIR [Concomitant]
     Dosage: UNK
  13. PENTAMIDINE ISETHIONATE [Concomitant]
     Dosage: UNK
  14. LAMIVUDINE [Concomitant]
     Indication: HIV INFECTION
     Dosage: UNK
  15. INDINAVIR [Concomitant]
     Indication: HIV INFECTION
     Dosage: UNK

REACTIONS (4)
  - Hepatic cirrhosis [Unknown]
  - Diarrhoea [Unknown]
  - Liver disorder [Unknown]
  - Drug level increased [Unknown]
